FAERS Safety Report 13289836 (Version 1)
Quarter: 2017Q1

REPORT INFORMATION
  Report Type: Spontaneous
  Country: US (occurrence: US)
  Receive Date: 20170302
  Receipt Date: 20170302
  Transmission Date: 20170428
  Serious: No
  Sender: FDA-Public Use
  Company Number: US-THE MEDICINES COMPANY-US-MDCO-16-00490

PATIENT
  Age: 80 Year
  Sex: Female

DRUGS (2)
  1. ORBACTIV [Suspect]
     Active Substance: ORITAVANCIN
     Indication: SKIN BACTERIAL INFECTION
     Dosage: NOT REPORTED
     Route: 041
     Dates: start: 20161115, end: 20161115
  2. ORBACTIV [Suspect]
     Active Substance: ORITAVANCIN
     Dosage: 150 CC/HOUR
     Route: 041
     Dates: start: 20161115, end: 20161115

REACTIONS (2)
  - Feeling hot [Recovered/Resolved]
  - Erythema [Recovered/Resolved]

NARRATIVE: CASE EVENT DATE: 20161115
